FAERS Safety Report 23651851 (Version 2)
Quarter: 2024Q2

REPORT INFORMATION
  Report Type: Report from Study
  Country: CN (occurrence: CN)
  Receive Date: 20240320
  Receipt Date: 20240506
  Transmission Date: 20240715
  Serious: Yes (Other)
  Sender: FDA-Public Use
  Company Number: CN-SUN PHARMACEUTICAL INDUSTRIES LTD-2024R1-428929

PATIENT
  Age: 67 Year
  Sex: Male
  Weight: 68.5 kg

DRUGS (1)
  1. SONIDEGIB [Suspect]
     Active Substance: SONIDEGIB
     Indication: Basal cell carcinoma
     Dosage: 200 MILLIGRAM, QD
     Route: 048
     Dates: start: 20231209, end: 20240202

REACTIONS (4)
  - Hypoventilation [Recovered/Resolved]
  - Ventricular arrhythmia [Recovered/Resolved]
  - Asthenia [Recovered/Resolved]
  - Blood creatine phosphokinase increased [Recovered/Resolved]

NARRATIVE: CASE EVENT DATE: 20231215
